FAERS Safety Report 10765887 (Version 1)
Quarter: 2015Q1

REPORT INFORMATION
  Report Type: Spontaneous
  Country: US (occurrence: US)
  Receive Date: 20150205
  Receipt Date: 20150205
  Transmission Date: 20150721
  Serious: Yes (Hospitalization)
  Sender: FDA-Public Use
  Company Number: US-JNJFOC-20150121263

PATIENT
  Age: 71 Year
  Sex: Female
  Weight: 83.46 kg

DRUGS (1)
  1. SIMPONI [Suspect]
     Active Substance: GOLIMUMAB
     Indication: RHEUMATOID ARTHRITIS
     Route: 058
     Dates: start: 2013

REACTIONS (5)
  - Device malfunction [Unknown]
  - Drug dose omission [Recovered/Resolved]
  - Chest pain [Recovered/Resolved]
  - Coronary arterial stent insertion [Unknown]
  - Needle issue [Unknown]

NARRATIVE: CASE EVENT DATE: 201409
